FAERS Safety Report 14144558 (Version 1)
Quarter: 2017Q4

REPORT INFORMATION
  Report Type: Spontaneous
  Country: FR (occurrence: FR)
  Receive Date: 20171031
  Receipt Date: 20171031
  Transmission Date: 20180321
  Serious: Yes (Hospitalization)
  Sender: FDA-Public Use
  Company Number: FR-AUROBINDO-AUR-APL-2017-42700

PATIENT
  Age: 20 Year
  Sex: Female

DRUGS (5)
  1. PRIMPERAN [Suspect]
     Active Substance: METOCLOPRAMIDE HYDROCHLORIDE
     Indication: NAUSEA
     Dosage: 5 MG, 3 TIMES A DAY
     Route: 042
     Dates: start: 20171005, end: 20171009
  2. ERYTHROMYCINE                      /00020901/ [Suspect]
     Active Substance: ERYTHROMYCIN
     Indication: INFECTION
     Dosage: 200 MG, FOUR TIMES/DAY
     Route: 042
     Dates: start: 20170928, end: 20171009
  3. PARACETAMOL PANPHARMA [Suspect]
     Active Substance: ACETAMINOPHEN
     Indication: PAIN
     Dosage: 1 G, 3 TIMES A DAY
     Route: 042
     Dates: start: 20171007, end: 20171009
  4. PANTOPRAZOLE SODIUM. [Suspect]
     Active Substance: PANTOPRAZOLE SODIUM
     Indication: DYSPEPSIA
     Dosage: 40 MG, DAILY
     Route: 042
     Dates: start: 20171003, end: 20171008
  5. FLUCONAZOLE KABI [Suspect]
     Active Substance: FLUCONAZOLE
     Indication: FUNGAL INFECTION
     Dosage: 100 MG, DAILY
     Route: 042
     Dates: start: 20171004, end: 20171007

REACTIONS (3)
  - Hepatocellular injury [Recovering/Resolving]
  - Condition aggravated [Recovering/Resolving]
  - Cholestasis [Recovering/Resolving]

NARRATIVE: CASE EVENT DATE: 20171009
